FAERS Safety Report 5189968-6 (Version None)
Quarter: 2006Q4

REPORT INFORMATION
  Report Type: 
  Country: None (occurrence: None)
  Receive Date: 20061218
  Receipt Date: 20061205
  Transmission Date: 20070319
  Serious: Yes (Life-Threatening)
  Sender: FDA-Public Use
  Company Number: 233469

PATIENT
  Age: 66 Year
  Sex: Male

DRUGS (5)
  1. RITUXAN [Suspect]
     Indication: NON-HODGKIN'S LYMPHOMA
  2. CYCLOPHOSPHAMIDE [Concomitant]
  3. DOXORUBICIN HCL [Concomitant]
  4. VINCRISTINE [Concomitant]
  5. PREDNISOLONE [Concomitant]

REACTIONS (1)
  - PNEUMOCYSTIS JIROVECI PNEUMONIA [None]
